FAERS Safety Report 19158953 (Version 2)
Quarter: 2021Q2

REPORT INFORMATION
  Report Type: Report from Study
  Country: US (occurrence: US)
  Receive Date: 20210420
  Receipt Date: 20210504
  Transmission Date: 20210717
  Serious: Yes (Hospitalization, Other)
  Sender: FDA-Public Use
  Company Number: US-SHIRE-US202016598

PATIENT
  Age: 67 Year
  Sex: Female
  Weight: 82 kg

DRUGS (14)
  1. FIRAZYR [Suspect]
     Active Substance: ICATIBANT ACETATE
     Indication: PRODUCT USED FOR UNKNOWN INDICATION
     Dosage: 30 MILLIGRAM, AS REQ^D
     Route: 065
  2. PANTOPRAZOLE [Concomitant]
     Active Substance: PANTOPRAZOLE
     Indication: PRODUCT USED FOR UNKNOWN INDICATION
  3. METFORMIN [Concomitant]
     Active Substance: METFORMIN HYDROCHLORIDE
     Indication: PRODUCT USED FOR UNKNOWN INDICATION
  4. VITAMINS NOS [Concomitant]
     Active Substance: VITAMINS
     Indication: PRODUCT USED FOR UNKNOWN INDICATION
  5. FIRAZYR [Suspect]
     Active Substance: ICATIBANT ACETATE
     Indication: PRODUCT USED FOR UNKNOWN INDICATION
     Dosage: 30 MILLIGRAM, AS REQ^D
     Route: 065
  6. AMLODIPINE [Concomitant]
     Active Substance: AMLODIPINE BESYLATE
     Indication: PRODUCT USED FOR UNKNOWN INDICATION
  7. ARMOUR THYROID [Concomitant]
     Active Substance: THYROID, PORCINE
     Indication: PRODUCT USED FOR UNKNOWN INDICATION
  8. LANADELUMAB [Suspect]
     Active Substance: LANADELUMAB
     Indication: IMMUNE SYSTEM DISORDER
     Dosage: 300 MILLIGRAM, Q2WEEKS
     Route: 058
     Dates: start: 20190219
  9. KRILL OIL [Concomitant]
     Active Substance: DIETARY SUPPLEMENT\KRILL OIL
     Indication: PRODUCT USED FOR UNKNOWN INDICATION
  10. DANAZOL. [Concomitant]
     Active Substance: DANAZOL
     Indication: PRODUCT USED FOR UNKNOWN INDICATION
  11. VITAMIN B12 [Concomitant]
     Active Substance: CYANOCOBALAMIN
     Indication: PRODUCT USED FOR UNKNOWN INDICATION
  12. ESTER?C [ASCORBIC ACID] [Concomitant]
     Active Substance: ASCORBIC ACID
     Indication: PRODUCT USED FOR UNKNOWN INDICATION
  13. SAW PALMETTO [SERENOA REPENS] [Concomitant]
     Active Substance: HERBALS\SAW PALMETTO
     Indication: PRODUCT USED FOR UNKNOWN INDICATION
  14. BIOTIN [Concomitant]
     Active Substance: BIOTIN
     Indication: PRODUCT USED FOR UNKNOWN INDICATION

REACTIONS (7)
  - Cancer surgery [Unknown]
  - Upper limb fracture [Unknown]
  - Fall [Unknown]
  - Neuralgia [Unknown]
  - Hernia [Unknown]
  - Hereditary angioedema [Unknown]
  - Ear neoplasm malignant [Unknown]

NARRATIVE: CASE EVENT DATE: 20210421
